FAERS Safety Report 4638311-7 (Version None)
Quarter: 2005Q2

REPORT INFORMATION
  Report Type: 
  Country: None (occurrence: None)
  Receive Date: 20050415
  Receipt Date: 20050405
  Transmission Date: 20051028
  Serious: Yes (Hospitalization)
  Sender: FDA-Public Use
  Company Number: 2005038351

PATIENT
  Age: 12 Year
  Sex: Male
  Weight: 40 kg

DRUGS (4)
  1. ZITHROMAX [Suspect]
     Indication: UPPER RESPIRATORY TRACT INFLAMMATION
     Dosage: 500 MG ORAL
     Route: 048
     Dates: start: 20050224, end: 20050224
  2. PONTAL (MEFENAMIC ACID) [Suspect]
     Indication: PYREXIA
     Dosage: AS NECESSARY, ORAL
     Route: 048
     Dates: start: 20050201, end: 20050201
  3. PONTAL (MEFENAMIC ACID) [Suspect]
     Indication: UPPER RESPIRATORY TRACT INFLAMMATION
     Dosage: AS NECESSARY, ORAL
     Route: 048
     Dates: start: 20050201, end: 20050201
  4. CLARITHROMYCIN [Suspect]
     Indication: UPPER RESPIRATORY TRACT INFLAMMATION
     Dosage: ORAL
     Route: 048
     Dates: start: 20050221, end: 20050223

REACTIONS (8)
  - ASTHMA [None]
  - DRUG HYPERSENSITIVITY [None]
  - DRUG INEFFECTIVE [None]
  - FEELING ABNORMAL [None]
  - MALAISE [None]
  - OEDEMA MUCOSAL [None]
  - STOMATITIS [None]
  - WHITE BLOOD CELL COUNT DECREASED [None]
